FAERS Safety Report 7263454-1 (Version None)
Quarter: 2011Q1

REPORT INFORMATION
  Report Type: 
  Country: None (occurrence: None)
  Receive Date: 20110130
  Receipt Date: 20101104
  Transmission Date: 20110831
  Serious: No
  Sender: FDA-Public Use
  Company Number: US-ABBOTT-10P-163-0683813-00

PATIENT
  Sex: Female
  Weight: 71.732 kg

DRUGS (2)
  1. HUMIRA [Suspect]
     Indication: RHEUMATOID ARTHRITIS
     Dosage: PEN AND PFS ALTERNATING
     Dates: end: 20090101
  2. METHOTREXATE [Suspect]
     Indication: RHEUMATOID ARTHRITIS

REACTIONS (7)
  - MACULE [None]
  - LIVER DISORDER [None]
  - EYE INFECTION [None]
  - RASH [None]
  - RHEUMATOID ARTHRITIS [None]
  - INJECTION SITE PAIN [None]
  - DRY EYE [None]
